FAERS Safety Report 4744805-6 (Version None)
Quarter: 2005Q3

REPORT INFORMATION
  Report Type: 
  Country: None (occurrence: None)
  Receive Date: 20050811
  Receipt Date: 20050729
  Transmission Date: 20060218
  Serious: Yes (Hospitalization, Other)
  Sender: FDA-Public Use
  Company Number: 2005095248

PATIENT
  Sex: Female
  Weight: 58.514 kg

DRUGS (8)
  1. DETROL LA [Suspect]
     Indication: HYPERTONIC BLADDER
     Dosage: 4 MG (4 MG, 1 IN 1 D), ORAL
     Route: 048
     Dates: start: 20020101, end: 20050709
  2. ACULAR [Suspect]
     Indication: ILL-DEFINED DISORDER
     Dosage: 1 DROP, QID INTERVAL: EVERY DAY), OPTHALMIC
     Route: 047
  3. PREVACID [Suspect]
     Indication: GASTROOESOPHAGEAL REFLUX DISEASE
     Dosage: 30 MG
  4. IRBESARTAN (ISBESARTAN) [Concomitant]
  5. LUNESTA (ESOCPICLONE) [Concomitant]
  6. ROPINIROLE (ROPINIROLE) [Concomitant]
  7. ASPIRIN [Concomitant]
  8. FELODIPINE [Concomitant]

REACTIONS (9)
  - ABDOMINAL DISTENSION [None]
  - CARDIAC DISORDER [None]
  - CARDIAC PACEMAKER INSERTION [None]
  - CHEST PAIN [None]
  - CYST [None]
  - DRUG INEFFECTIVE [None]
  - EMPHYSEMA [None]
  - GLAUCOMA [None]
  - RETINAL CYST [None]
